FAERS Safety Report 7728770-5 (Version None)
Quarter: 2011Q3

REPORT INFORMATION
  Report Type: 
  Country: None (occurrence: None)
  Receive Date: 20110831
  Receipt Date: 20110831
  Transmission Date: 20111222
  Serious: No
  Sender: FDA-Public Use
  Company Number: None

PATIENT
  Age: 56 Year
  Sex: Male
  Weight: 70.9 kg

DRUGS (1)
  1. FLUDARABINE PHOSPHATE [Suspect]
     Dosage: 50 MG EVERY DAY IV
     Route: 042
     Dates: start: 20110620, end: 20110819

REACTIONS (1)
  - RASH [None]
